FAERS Safety Report 6892946-X (Version None)
Quarter: 2010Q3

REPORT INFORMATION
  Report Type: 
  Country: None (occurrence: None)
  Receive Date: 20100731
  Receipt Date: 20081125
  Transmission Date: 20110219
  Serious: No
  Sender: FDA-Public Use
  Company Number: US-PFIZER INC-2008100775

PATIENT
  Sex: Female
  Weight: 90.72 kg

DRUGS (3)
  1. NEURONTIN [Suspect]
     Indication: PAIN IN EXTREMITY
     Dates: start: 20080801, end: 20080901
  2. FLEXERIL [Concomitant]
  3. LORTAB [Concomitant]

REACTIONS (3)
  - FEELING ABNORMAL [None]
  - IMPAIRED DRIVING ABILITY [None]
  - UNEVALUABLE EVENT [None]
